FAERS Safety Report 4423990-X (Version None)
Quarter: 2004Q3

REPORT INFORMATION
  Report Type: 
  Country: None (occurrence: None)
  Receive Date: 20040812
  Receipt Date: 20040729
  Transmission Date: 20050211
  Serious: Yes (Disabling, Other)
  Sender: FDA-Public Use
  Company Number: 200412519JP

PATIENT
  Age: 52 Year
  Sex: Female

DRUGS (1)
  1. ALLEGRA [Suspect]
     Indication: RHINITIS
     Route: 048
     Dates: start: 20040430, end: 20040505

REACTIONS (3)
  - INSOMNIA [None]
  - SLEEP DISORDER [None]
  - THIRST [None]
